FAERS Safety Report 6146107-2 (Version None)
Quarter: 2009Q2

REPORT INFORMATION
  Report Type: 
  Country: None (occurrence: None)
  Receive Date: 20090407
  Receipt Date: 20090330
  Transmission Date: 20091009
  Serious: Yes (Other)
  Sender: FDA-Public Use
  Company Number: US-JNJFOC-20090400207

PATIENT
  Sex: Female
  Weight: 73.48 kg

DRUGS (10)
  1. FENTANYL TRANSDERMAL SYSTEM [Suspect]
     Indication: BACK PAIN
     Route: 062
  2. LYRICA [Suspect]
     Indication: MYALGIA
     Route: 048
  3. ATENOLOL [Concomitant]
     Indication: HYPERTENSION
     Route: 048
  4. COZAAR [Concomitant]
     Indication: HYPERTENSION
     Route: 048
  5. NORVASC [Concomitant]
     Indication: HYPERTENSION
     Route: 048
  6. PRAVASTATIN [Concomitant]
     Indication: BLOOD CHOLESTEROL INCREASED
     Route: 048
  7. DYAZIDE [Concomitant]
     Indication: FLUID RETENTION
     Dosage: AS NEEDED
     Route: 048
  8. DOXEPIN HCL [Concomitant]
     Indication: DEPRESSION
     Dosage: ONE AT BED TIME
     Route: 048
  9. ATIVAN [Concomitant]
     Indication: DEPRESSION
     Dosage: 0.5 MG/TABLET/1MG/ONE HALF TABLET AS NEEDED/ORAL
  10. LORTAB [Concomitant]
     Indication: PAIN
     Dosage: 10/500 MG/AS NEEDED
     Route: 048

REACTIONS (6)
  - ARTHROPATHY [None]
  - DIZZINESS [None]
  - DRUG ADMINISTERED AT INAPPROPRIATE SITE [None]
  - RENAL PAIN [None]
  - RHEUMATOID ARTHRITIS [None]
  - VISUAL IMPAIRMENT [None]
